FAERS Safety Report 7591015-3 (Version None)
Quarter: 2011Q3

REPORT INFORMATION
  Report Type: 
  Country: None (occurrence: None)
  Receive Date: 20110705
  Receipt Date: 20110616
  Transmission Date: 20111222
  Serious: Yes (Other)
  Sender: FDA-Public Use
  Company Number: HU-BAYER-2011-056779

PATIENT
  Age: 22 Year
  Sex: Female

DRUGS (4)
  1. ASPIRIN [Suspect]
  2. HEPARIN [Concomitant]
  3. LEVOTHYROXINE SODIUM [Concomitant]
  4. CORTICOSTEROIDS [Concomitant]

REACTIONS (1)
  - CAESAREAN SECTION [None]
